FAERS Safety Report 9513903 (Version 2)
Quarter: 2013Q4

REPORT INFORMATION
  Report Type: Spontaneous
  Country: GB (occurrence: GB)
  Receive Date: 20130910
  Receipt Date: 20131202
  Transmission Date: 20140711
  Serious: Yes (Other)
  Sender: FDA-Public Use
  Company Number: GB-PFIZER INC-2013256856

PATIENT
  Age: 79 Year
  Sex: Male
  Weight: 87.8 kg

DRUGS (17)
  1. AMLODIPINE BESILATE [Suspect]
     Indication: CARDIAC FAILURE
     Dosage: 5 MG, 1X/DAY
     Route: 048
     Dates: start: 200603
  2. IMDUR [Concomitant]
     Dosage: UNK
  3. SIMVASTATIN [Concomitant]
     Dosage: UNK
  4. NASONEX [Concomitant]
     Dosage: UNK
  5. PARACETAMOL [Concomitant]
     Dosage: UNK
  6. DESLORATADINE [Concomitant]
     Dosage: UNK
  7. ALENDRONIC ACID [Concomitant]
     Dosage: UNK
     Dates: start: 200703
  8. ADCAL-D3 [Concomitant]
     Dosage: UNK
  9. CANDESARTAN [Concomitant]
     Dosage: UNK
  10. OMEPRAZOLE [Concomitant]
     Dosage: UNK
  11. NICORANDIL [Concomitant]
     Dosage: UNK
  12. ATENOLOL [Concomitant]
     Dosage: UNK
  13. MOVICOL [Concomitant]
     Dosage: UNK
  14. ACETYLSALICYLIC ACID [Concomitant]
     Dosage: UNK
  15. PREDNISOLONE [Concomitant]
     Dosage: UNK
  16. OILATUM [Concomitant]
     Dosage: UNK
  17. E.45 [Concomitant]
     Dosage: UNK

REACTIONS (5)
  - Cough [Not Recovered/Not Resolved]
  - Rhinitis allergic [Not Recovered/Not Resolved]
  - Constipation [Not Recovered/Not Resolved]
  - Extrapyramidal disorder [Not Recovered/Not Resolved]
  - Condition aggravated [Unknown]
